FAERS Safety Report 7167097-X (Version None)
Quarter: 2010Q4

REPORT INFORMATION
  Report Type: 
  Country: None (occurrence: None)
  Receive Date: 20101213
  Receipt Date: 20101213
  Transmission Date: 20110411
  Serious: Yes (Other)
  Sender: FDA-Public Use
  Company Number: None

PATIENT
  Age: 5 Year
  Sex: Male
  Weight: 17.2367 kg

DRUGS (2)
  1. CEFPROZIL [Suspect]
     Indication: ANTIBIOTIC PROPHYLAXIS
     Dosage: 1 TSP TWICE A DAY PO
     Route: 048
     Dates: start: 20101202, end: 20101209
  2. CEFPROZIL [Suspect]
     Indication: PHARYNGITIS STREPTOCOCCAL
     Dosage: 1 TSP TWICE A DAY PO
     Route: 048
     Dates: start: 20101202, end: 20101209

REACTIONS (1)
  - DRUG HYPERSENSITIVITY [None]
